FAERS Safety Report 24646961 (Version 2)
Quarter: 2024Q4

REPORT INFORMATION
  Report Type: Spontaneous
  Country: PH (occurrence: PH)
  Receive Date: 20241121
  Receipt Date: 20241129
  Transmission Date: 20250114
  Serious: Yes (Hospitalization)
  Sender: RANBAXY
  Company Number: PH-SUN PHARMACEUTICAL INDUSTRIES LTD-2024R1-479554

PATIENT
  Sex: Male

DRUGS (3)
  1. LANSOPRAZOLE [Suspect]
     Active Substance: LANSOPRAZOLE
     Indication: Product used for unknown indication
     Dosage: 11 TABLETSOF 30MG/TABLET (4.9 MG/KG)
     Route: 065
  2. ACETAMINOPHEN [Suspect]
     Active Substance: ACETAMINOPHEN
     Indication: Product used for unknown indication
     Dosage: 3 TABLETS OF 500MG/TABLET (64.9MG/KG)
     Route: 065
  3. ACETAMINOPHEN\PHENYLEPHRINE [Suspect]
     Active Substance: ACETAMINOPHEN\PHENYLEPHRINE
     Indication: Product used for unknown indication
     Dosage: 0.9 MILLIGRAM/KILOGRAM
     Route: 065

REACTIONS (2)
  - Overdose [Unknown]
  - Atrioventricular block [Recovered/Resolved]
